FAERS Safety Report 10465112 (Version 3)
Quarter: 2014Q4

REPORT INFORMATION
  Report Type: Spontaneous
  Country: JP (occurrence: JP)
  Receive Date: 20140919
  Receipt Date: 20141017
  Transmission Date: 20150528
  Serious: Yes (Hospitalization)
  Sender: FDA-Public Use
  Company Number: JP-MYLANLABS-2014S1010612

PATIENT

DRUGS (14)
  1. GOSHAJINKIGAN [Suspect]
     Active Substance: HERBALS
     Indication: PROPHYLAXIS
     Dosage: 2.5 G, TID
     Route: 048
     Dates: start: 20140416, end: 20140423
  2. EMEND [Suspect]
     Active Substance: APREPITANT
     Indication: PROPHYLAXIS OF NAUSEA AND VOMITING
     Dosage: 125 MG, QD
     Route: 048
     Dates: start: 20140416
  3. METHYCOBAL [Concomitant]
     Active Substance: METHYLCOBALAMIN
     Dosage: 500 ?G, UNK
     Route: 048
     Dates: start: 20140416, end: 20140422
  4. LOXOPROFEN                         /00890702/ [Concomitant]
     Active Substance: LOXOPROFEN
     Route: 048
  5. RAMOSETRON [Concomitant]
     Active Substance: RAMOSETRON HYDROCHLORIDE
     Dosage: 0.3 MG, UNK
     Route: 041
     Dates: start: 20140416
  6. EMEND [Suspect]
     Active Substance: APREPITANT
     Dosage: 80 MG, BID
     Route: 048
     Dates: start: 20140416
  7. DEXART [Concomitant]
     Active Substance: DEXAMETHASONE SODIUM PHOSPHATE
     Dosage: 9.9 MG, UNK
     Route: 041
     Dates: start: 20140416
  8. CARBOPLATIN INJECTION 450 MG ^NK^ [Suspect]
     Active Substance: CARBOPLATIN
     Indication: OVARIAN CANCER
     Dosage: 520 MG, UNK
     Route: 041
     Dates: start: 20140416
  9. CARBOPLATIN INJECTION 450 MG ^NK^ [Suspect]
     Active Substance: CARBOPLATIN
     Dosage: 500 UNK, UNK
     Route: 041
     Dates: start: 20140520, end: 20140827
  10. POLARAMINE [Concomitant]
     Active Substance: DEXCHLORPHENIRAMINE MALEATE
     Dosage: 5 MG, UNK
     Route: 041
     Dates: start: 20140416
  11. PACLITAXEL. [Suspect]
     Active Substance: PACLITAXEL
     Indication: OVARIAN CANCER
     Dosage: 280 MG,UNK
     Route: 041
     Dates: start: 20140416
  12. AMLODIPINE [Concomitant]
     Active Substance: AMLODIPINE BESYLATE
     Dosage: 5 MG, QD
     Route: 048
  13. DAIKENCHUTO [Concomitant]
     Active Substance: HERBALS
     Indication: PROPHYLAXIS
     Dosage: 2.5 G, TID
     Route: 048
     Dates: start: 20140331, end: 20140423
  14. FAMOTIDIN [Concomitant]
     Dosage: 20 MG, UNK
     Route: 041
     Dates: start: 20140416

REACTIONS (2)
  - Rash [Recovering/Resolving]
  - Erythema [Recovering/Resolving]

NARRATIVE: CASE EVENT DATE: 20140416
